FAERS Safety Report 9701999 (Version 1)
Quarter: 2013Q4

REPORT INFORMATION
  Report Type: Spontaneous
  Country: TR (occurrence: None)
  Receive Date: 20131120
  Receipt Date: 20131120
  Transmission Date: 20140711
  Serious: Yes (Other)
  Sender: FDA-Public Use
  Company Number: TR-MACLEODS PHARMA-000165

PATIENT
  Age: 29 Year
  Sex: Male

DRUGS (1)
  1. ESCITALOPRAM [Suspect]
     Indication: IMPULSE-CONTROL DISORDER
     Dosage: 10.00-MG-1.0DAYS

REACTIONS (1)
  - Parkinsonism [None]
